FAERS Safety Report 18407351 (Version 4)
Quarter: 2021Q2

REPORT INFORMATION
  Report Type: Other
  Country: CA (occurrence: CA)
  Receive Date: 20201021
  Receipt Date: 20210630
  Transmission Date: 20210717
  Serious: Yes (Other)
  Sender: FDA-Public Use
  Company Number: CA-CELLTRION INC.-2020CA028996

PATIENT

DRUGS (16)
  1. ALENDRONATE SODIUM. [Concomitant]
     Active Substance: ALENDRONATE SODIUM
     Indication: PRODUCT USED FOR UNKNOWN INDICATION
  2. FOLIC ACID. [Concomitant]
     Active Substance: FOLIC ACID
     Indication: PRODUCT USED FOR UNKNOWN INDICATION
  3. RAMIPRIL. [Concomitant]
     Active Substance: RAMIPRIL
     Indication: PRODUCT USED FOR UNKNOWN INDICATION
  4. RITUXIMAB (UNKNOWN) [Suspect]
     Active Substance: RITUXIMAB
     Dosage: 1000.0 MILLIGRAM
     Route: 042
  5. DIPHENHYDRAMINE. [Concomitant]
     Active Substance: DIPHENHYDRAMINE
     Indication: PREMEDICATION
     Dosage: 50.0 MILLIGRAM
     Route: 048
  6. RITUXIMAB (UNKNOWN) [Suspect]
     Active Substance: RITUXIMAB
     Indication: RHEUMATOID ARTHRITIS
     Dosage: 1000.0 MILLIGRAM
     Route: 042
  7. ALFUZOSIN [Concomitant]
     Active Substance: ALFUZOSIN
     Indication: PRODUCT USED FOR UNKNOWN INDICATION
  8. ATORVASTATIN [Concomitant]
     Active Substance: ATORVASTATIN
     Indication: PRODUCT USED FOR UNKNOWN INDICATION
  9. DOCUSATE SODIUM. [Concomitant]
     Active Substance: DOCUSATE SODIUM
  10. METOPROLOL. [Concomitant]
     Active Substance: METOPROLOL
     Indication: PRODUCT USED FOR UNKNOWN INDICATION
  11. METHOTREXATE. [Concomitant]
     Active Substance: METHOTREXATE
     Indication: PRODUCT USED FOR UNKNOWN INDICATION
     Route: 048
  12. METHYLPREDNISOLONE. [Concomitant]
     Active Substance: METHYLPREDNISOLONE
     Indication: PREMEDICATION
     Dosage: 100.0 MILLIGRAM
     Route: 042
  13. PREDNISONE. [Concomitant]
     Active Substance: PREDNISONE
     Indication: PRODUCT USED FOR UNKNOWN INDICATION
  14. ACETAMINOPHEN. [Concomitant]
     Active Substance: ACETAMINOPHEN
     Indication: PREMEDICATION
     Dosage: 650.0 MILLIGRAM
     Route: 048
  15. DEXILANT [Concomitant]
     Active Substance: DEXLANSOPRAZOLE
     Indication: PRODUCT USED FOR UNKNOWN INDICATION
  16. FINASTERIDE. [Concomitant]
     Active Substance: FINASTERIDE
     Indication: PRODUCT USED FOR UNKNOWN INDICATION

REACTIONS (11)
  - Heart rate decreased [Unknown]
  - Blood pressure systolic increased [Unknown]
  - Blood pressure diastolic abnormal [Unknown]
  - Blood pressure diastolic decreased [Unknown]
  - Device occlusion [Unknown]
  - Synovitis [Unknown]
  - Arthralgia [Unknown]
  - Oxygen saturation decreased [Unknown]
  - Blood pressure fluctuation [Unknown]
  - Blood pressure increased [Unknown]
  - Infusion related reaction [Unknown]
